FAERS Safety Report 8556099-4 (Version None)
Quarter: 2012Q3

REPORT INFORMATION
  Report Type: 
  Country: None (occurrence: None)
  Receive Date: 20120801
  Receipt Date: 20120725
  Transmission Date: 20120928
  Serious: Yes (Other)
  Sender: FDA-Public Use
  Company Number: US-JNJFOC-20120609911

PATIENT
  Age: 53 Year
  Sex: Male

DRUGS (2)
  1. NICOTROL [Suspect]
     Indication: SMOKING CESSATION THERAPY
     Route: 065
  2. UNKNOWN MEDICATION [Concomitant]
     Indication: HIV INFECTION
     Route: 065

REACTIONS (1)
  - NEOPLASM MALIGNANT [None]
